FAERS Safety Report 7359271-4 (Version None)
Quarter: 2011Q1

REPORT INFORMATION
  Report Type: 
  Country: None (occurrence: None)
  Receive Date: 20110317
  Receipt Date: 20091026
  Transmission Date: 20110831
  Serious: No
  Sender: FDA-Public Use
  Company Number: US-PFIZER INC-2009289126

PATIENT
  Sex: Female

DRUGS (5)
  1. REVLIMID [Suspect]
     Indication: MULTIPLE MYELOMA
     Dosage: 5 MG, EVERY OTHER DAY FOR 22 DAYS OUT OF 28 D
     Route: 048
     Dates: start: 20090415
  2. WARFARIN SODIUM [Concomitant]
     Route: 065
  3. NORVASC [Suspect]
     Dosage: UNK
     Route: 065
  4. REVLIMID [Suspect]
     Dosage: 5 MG, EVERY THIRD DAY
     Route: 048
     Dates: start: 20090513
  5. DEXAMETHASONE [Suspect]
     Route: 065

REACTIONS (5)
  - URINARY TRACT INFECTION [None]
  - WEIGHT DECREASED [None]
  - DECREASED APPETITE [None]
  - OEDEMA PERIPHERAL [None]
  - ORAL CANDIDIASIS [None]
